FAERS Safety Report 7518434-5 (Version None)
Quarter: 2011Q2

REPORT INFORMATION
  Report Type: 
  Country: None (occurrence: None)
  Receive Date: 20110602
  Receipt Date: 20110518
  Transmission Date: 20111010
  Serious: Yes (Other)
  Sender: FDA-Public Use
  Company Number: CA-JNJFOC-20110509002

PATIENT
  Sex: Male
  Weight: 118 kg

DRUGS (5)
  1. ZANTAC [Concomitant]
  2. ALTACE [Concomitant]
     Route: 048
  3. REMICADE [Suspect]
     Indication: CROHN'S DISEASE
     Route: 042
     Dates: start: 20100401
  4. IMURAN [Concomitant]
     Route: 048
  5. LASIX [Concomitant]
     Route: 048

REACTIONS (2)
  - HERNIA [None]
  - ABDOMINAL PAIN [None]
